APPROVED DRUG PRODUCT: VENLAFAXINE HYDROCHLORIDE
Active Ingredient: VENLAFAXINE HYDROCHLORIDE
Strength: EQ 75MG BASE
Dosage Form/Route: TABLET, EXTENDED RELEASE;ORAL
Application: N022104 | Product #002 | TE Code: AB
Applicant: OSMOTICA PHARMACEUTICAL US LLC
Approved: May 20, 2008 | RLD: Yes | RS: No | Type: RX